FAERS Safety Report 19394608 (Version 1)
Quarter: 2021Q2

REPORT INFORMATION
  Report Type: Spontaneous
  Country: LT (occurrence: LT)
  Receive Date: 20210609
  Receipt Date: 20210609
  Transmission Date: 20210717
  Serious: Yes (Other)
  Sender: FDA-Public Use
  Company Number: LT-MYLANLABS-2021M1033282

PATIENT
  Age: 21 Year
  Sex: Male

DRUGS (30)
  1. CIPROFLOXACIN. [Concomitant]
     Active Substance: CIPROFLOXACIN
     Indication: INFLAMMATORY MARKER INCREASED
     Dosage: 31ST DAY
     Route: 042
  2. OLANZAPINE. [Suspect]
     Active Substance: OLANZAPINE
     Indication: ABNORMAL BEHAVIOUR
     Dosage: 35TH DAY
  3. HALOPERIDOL. [Concomitant]
     Active Substance: HALOPERIDOL
     Indication: PSYCHOMOTOR HYPERACTIVITY
  4. HALOPERIDOL. [Concomitant]
     Active Substance: HALOPERIDOL
     Indication: PSYCHOTIC SYMPTOM
     Dosage: 1ST DAY TO 23TH DAY
  5. TRIHEXYPHENIDYL [Concomitant]
     Active Substance: TRIHEXYPHENIDYL
     Indication: PERSECUTORY DELUSION
     Dosage: 35TH DAY
  6. IBUPROFEN. [Concomitant]
     Active Substance: IBUPROFEN
     Indication: PYREXIA
     Dosage: 31ST DAY
  7. DEXAMETHASONE. [Concomitant]
     Active Substance: DEXAMETHASONE
     Indication: RASH
     Dosage: 32ND DAY TO 39TH DAY
  8. CEFUROXIME. [Concomitant]
     Active Substance: CEFUROXIME
     Indication: SINUSITIS
     Dosage: 22ND DAY TO 39TH DAY
     Route: 042
  9. AMOXICILLIN. [Concomitant]
     Active Substance: AMOXICILLIN
     Indication: INFLAMMATORY MARKER INCREASED
  10. LORATADINE. [Concomitant]
     Active Substance: LORATADINE
     Indication: RASH
     Dosage: 31ST DAY
  11. HALOPERIDOL. [Concomitant]
     Active Substance: HALOPERIDOL
     Indication: PERSECUTORY DELUSION
     Dosage: 36TH DAY TO 42ND DAY
  12. DIAZEPAM. [Concomitant]
     Active Substance: DIAZEPAM
     Indication: PERSECUTORY DELUSION
     Dosage: 36TH TO 42TH DAY
     Route: 048
  13. CEFUROXIME. [Concomitant]
     Active Substance: CEFUROXIME
     Indication: INFLAMMATORY MARKER INCREASED
  14. FACTOR VIII [Concomitant]
     Active Substance: ANTIHEMOPHILIC FACTOR HUMAN
     Indication: PROPHYLAXIS
     Dosage: 28TH DAY
     Route: 042
  15. DIAZEPAM. [Concomitant]
     Active Substance: DIAZEPAM
     Indication: PSYCHOMOTOR HYPERACTIVITY
  16. DIAZEPAM. [Concomitant]
     Active Substance: DIAZEPAM
     Indication: PSYCHOTIC SYMPTOM
     Dosage: 1ST TO 32TH DAY
     Route: 048
  17. DIAZEPAM. [Concomitant]
     Active Substance: DIAZEPAM
     Indication: AGGRESSION
  18. TRIHEXYPHENIDYL [Concomitant]
     Active Substance: TRIHEXYPHENIDYL
     Indication: PSYCHOMOTOR HYPERACTIVITY
     Dosage: 39TH DAY
  19. AMOXICILLIN. [Concomitant]
     Active Substance: AMOXICILLIN
     Indication: OROPHARYNGEAL PAIN
  20. OLANZAPINE. [Suspect]
     Active Substance: OLANZAPINE
     Indication: PERSECUTORY DELUSION
     Dosage: 8TH DAY
  21. CARBAMAZEPINE. [Suspect]
     Active Substance: CARBAMAZEPINE
     Indication: PERSECUTORY DELUSION
     Dosage: 11TH DAY
     Route: 048
  22. CARBAMAZEPINE. [Suspect]
     Active Substance: CARBAMAZEPINE
     Indication: ABNORMAL BEHAVIOUR
     Dosage: 14TH DAY
     Route: 048
  23. CARBAMAZEPINE. [Suspect]
     Active Substance: CARBAMAZEPINE
     Dosage: 16TH DAY TO 32 ND DAY
     Route: 048
  24. CIPROFLOXACIN. [Concomitant]
     Active Substance: CIPROFLOXACIN
     Dosage: 35TH DAY TO 39TH DAY
     Route: 042
  25. LORATADINE. [Concomitant]
     Active Substance: LORATADINE
     Dosage: 32ND DAY TO 39TH DAY
     Route: 048
  26. HALOPERIDOL. [Concomitant]
     Active Substance: HALOPERIDOL
     Indication: AGGRESSION
  27. TRIHEXYPHENIDYL [Concomitant]
     Active Substance: TRIHEXYPHENIDYL
     Indication: PSYCHOTIC SYMPTOM
     Dosage: 1ST DAY TO 32ND DAY
  28. TRIHEXYPHENIDYL [Concomitant]
     Active Substance: TRIHEXYPHENIDYL
     Indication: AGGRESSION
     Dosage: 42ND DAY
  29. AMOXICILLIN. [Concomitant]
     Active Substance: AMOXICILLIN
     Indication: ORAL MUCOSAL ERUPTION
     Dosage: 14TH DAY TO 20TH DAY
     Route: 048
  30. CLEMASTINE [Concomitant]
     Active Substance: CLEMASTINE
     Indication: VIRAL INFECTION
     Dosage: 20TH DAY TO 39TH DAY
     Route: 048

REACTIONS (7)
  - Extrapyramidal disorder [Unknown]
  - Hepatic enzyme increased [Not Recovered/Not Resolved]
  - Drug ineffective [Unknown]
  - Oropharyngeal pain [Not Recovered/Not Resolved]
  - Splenomegaly [Unknown]
  - Drug reaction with eosinophilia and systemic symptoms [Unknown]
  - Inflammatory marker increased [Recovered/Resolved]
